FAERS Safety Report 25261837 (Version 2)
Quarter: 2025Q2

REPORT INFORMATION
  Report Type: Spontaneous
  Country: JP (occurrence: JP)
  Receive Date: 20250502
  Receipt Date: 20250611
  Transmission Date: 20250716
  Serious: Yes (Death, Other)
  Sender: GENMAB
  Company Number: JP-GENMAB-2025-01179

PATIENT
  Age: 83 Year
  Sex: Male

DRUGS (1)
  1. EPKINLY [Suspect]
     Active Substance: EPCORITAMAB-BYSP
     Indication: Lymphoma
     Route: 065
     Dates: start: 20240430

REACTIONS (2)
  - Cytomegalovirus infection reactivation [Unknown]
  - Lymphoma [Fatal]

NARRATIVE: CASE EVENT DATE: 20240806
